FAERS Safety Report 6110646-0 (Version None)
Quarter: 2009Q1

REPORT INFORMATION
  Report Type: 
  Country: None (occurrence: None)
  Receive Date: 20090310
  Receipt Date: 20090304
  Transmission Date: 20090719
  Serious: Yes (Disabling)
  Sender: FDA-Public Use
  Company Number: US-MERCK-0811USA03168

PATIENT
  Sex: Female

DRUGS (1)
  1. FOSAMAX [Suspect]
     Route: 048
     Dates: start: 20020101

REACTIONS (4)
  - ADVERSE EVENT [None]
  - EMOTIONAL DISTRESS [None]
  - PAIN [None]
  - TEMPOROMANDIBULAR JOINT SYNDROME [None]
